FAERS Safety Report 17033683 (Version 1)
Quarter: 2019Q4

REPORT INFORMATION
  Report Type: Report from Study
  Country: US (occurrence: US)
  Receive Date: 20191114
  Receipt Date: 20191114
  Transmission Date: 20200122
  Serious: Yes (Hospitalization)
  Sender: FDA-Public Use
  Company Number: US-JNJFOC-20191109394

PATIENT
  Age: 73 Year
  Sex: Male

DRUGS (14)
  1. IMBRUVICA [Suspect]
     Active Substance: IBRUTINIB
     Indication: CHRONIC LYMPHOCYTIC LEUKAEMIA
     Dosage: 280 MG, QD
     Route: 048
     Dates: start: 20190920, end: 20191025
  2. ELIQUIS [Suspect]
     Active Substance: APIXABAN
     Indication: PRODUCT USED FOR UNKNOWN INDICATION
     Route: 065
  3. HYDROCHLOROTHIAZIDE. [Concomitant]
     Active Substance: HYDROCHLOROTHIAZIDE
  4. ALLERGY RELIEF                     /00072502/ [Concomitant]
  5. LISINOPRIL. [Concomitant]
     Active Substance: LISINOPRIL
  6. LIPITOR [Concomitant]
     Active Substance: ATORVASTATIN CALCIUM
  7. TYLENOL [Concomitant]
     Active Substance: ACETAMINOPHEN
  8. VITAMIN D NOS [Concomitant]
     Active Substance: VITAMIN D NOS
  9. LEVOTHYROXINE. [Concomitant]
     Active Substance: LEVOTHYROXINE
  10. METFORMIN [Concomitant]
     Active Substance: METFORMIN HYDROCHLORIDE
  11. NITROSTAT [Concomitant]
     Active Substance: NITROGLYCERIN
  12. OMEPRAZOLE. [Concomitant]
     Active Substance: OMEPRAZOLE
  13. AMIODARONE [Concomitant]
     Active Substance: AMIODARONE
  14. DIGOXIN. [Concomitant]
     Active Substance: DIGOXIN

REACTIONS (4)
  - Off label use [Unknown]
  - Product use issue [Unknown]
  - Pneumonia [Unknown]
  - Haemorrhage [Unknown]

NARRATIVE: CASE EVENT DATE: 2019
